FAERS Safety Report 4763158-0 (Version None)
Quarter: 2005Q3

REPORT INFORMATION
  Report Type: 
  Country: None (occurrence: None)
  Receive Date: 20050829
  Receipt Date: 20050815
  Transmission Date: 20060218
  Serious: Yes (Other)
  Sender: FDA-Public Use
  Company Number: DEWYE907915AUG05

PATIENT
  Age: 27 Year

DRUGS (1)
  1. REFACTO [Suspect]
     Indication: FACTOR VIII DEFICIENCY
     Dosage: SEE IMAGE
     Dates: start: 20050101

REACTIONS (1)
  - ANTI FACTOR VIII ANTIBODY POSITIVE [None]
